FAERS Safety Report 8863027 (Version 1)
Quarter: 2012Q4

REPORT INFORMATION
  Report Type: 
  Country: FR (occurrence: FR)
  Receive Date: 20121026
  Receipt Date: 20121026
  Transmission Date: 20130627
  Serious: Yes (Hospitalization)
  Sender: FDA-Public Use
  Company Number: FR-BRISTOL-MYERS SQUIBB COMPANY-17048059

PATIENT
  Age: 92 Year
  Sex: Female

DRUGS (10)
  1. COUMADIN TABS 2 MG [Suspect]
     Dosage: stopped on 31Jan12
     Route: 048
  2. KARDEGIC [Suspect]
     Dosage: 75 mg powder for oral solution (acetyl salicylic acid) 1 sachet/d
     Route: 048
     Dates: end: 201202
  3. BURINEX [Concomitant]
     Dosage: tab
2 in the morning and 1 at midday
  4. ALDACTONE [Concomitant]
     Dosage: 50mg tablet 1/d at midday
  5. BISOPROLOL [Concomitant]
     Dosage: in the morning
  6. PROTELOS [Concomitant]
     Dosage: 2g granules for oral suspension
     Route: 048
  7. IMOVANE [Concomitant]
     Dosage: tab in the evening
  8. ALPRAZOLAM [Concomitant]
     Dosage: Alprazolam Mylan in the evng
  9. DISCOTRINE [Concomitant]
     Dosage: 1 patch /d
     Route: 062
  10. LAMALINE [Concomitant]
     Dosage: hard capsule 2 to 6/d

REACTIONS (4)
  - Pelvic haematoma [Recovered/Resolved]
  - Fall [Unknown]
  - Head injury [Unknown]
  - Pelvic fracture [Unknown]
